FAERS Safety Report 18566506 (Version 1)
Quarter: 2020Q4

REPORT INFORMATION
  Report Type: Spontaneous
  Country: US (occurrence: US)
  Receive Date: 20201201
  Receipt Date: 20201201
  Transmission Date: 20210114
  Serious: Yes (Hospitalization, Other)
  Sender: FDA-Public Use
  Company Number: US-BAYER-2020-254970

PATIENT
  Age: 74 Year
  Sex: Male

DRUGS (1)
  1. ACETYLSALICYLIC ACID [Suspect]
     Active Substance: ASPIRIN

REACTIONS (5)
  - Colitis ischaemic [Unknown]
  - Incarcerated inguinal hernia [Unknown]
  - Haematochezia [Unknown]
  - Contraindicated product administered [Unknown]
  - Shock haemorrhagic [Unknown]
